FAERS Safety Report 20376220 (Version 1)
Quarter: 2022Q1

REPORT INFORMATION
  Report Type: Spontaneous
  Country: US (occurrence: None)
  Receive Date: 20220125
  Receipt Date: 20220125
  Transmission Date: 20220423
  Serious: Yes (Life-Threatening)
  Sender: FDA-Public Use
  Company Number: None

PATIENT
  Age: 84 Year
  Sex: Male

DRUGS (1)
  1. NITROGLYCERIN [Suspect]
     Active Substance: NITROGLYCERIN
     Dosage: FREQUENCY : ONCE;?
     Route: 042

REACTIONS (4)
  - Dyspnoea [None]
  - Blood pressure increased [None]
  - Oxygen saturation decreased [None]
  - Pulse absent [None]

NARRATIVE: CASE EVENT DATE: 20210127
